FAERS Safety Report 6929294-5 (Version None)
Quarter: 2010Q3

REPORT INFORMATION
  Report Type: 
  Country: None (occurrence: None)
  Receive Date: 20100817
  Receipt Date: 20100810
  Transmission Date: 20110219
  Serious: Yes (Other)
  Sender: FDA-Public Use
  Company Number: US-BRISTOL-MYERS SQUIBB COMPANY-15234289

PATIENT
  Age: 73 Year
  Sex: Male

DRUGS (6)
  1. ONGLYZA [Suspect]
     Dates: start: 20100604, end: 20100805
  2. ALLOPURINOL [Concomitant]
  3. BENECOL [Concomitant]
  4. CRESTOR [Concomitant]
  5. LOTREL [Concomitant]
  6. PROTONIX [Concomitant]

REACTIONS (1)
  - PANCREATITIS [None]
